FAERS Safety Report 4931000-0 (Version None)
Quarter: 2006Q1

REPORT INFORMATION
  Report Type: 
  Country: None (occurrence: None)
  Receive Date: 20060227
  Receipt Date: 20060214
  Transmission Date: 20060701
  Serious: Yes (Disabling, Other)
  Sender: FDA-Public Use
  Company Number: 2006013968

PATIENT
  Age: 21 Year
  Sex: Male
  Weight: 79.3795 kg

DRUGS (1)
  1. FRAGMIN [Suspect]
     Indication: THROMBOSIS PROPHYLAXIS
     Dosage: 5000 I.U. (5000 I.U., DAILY), SUBCUTANEOUS
     Route: 058
     Dates: start: 20051221, end: 20051224

REACTIONS (6)
  - ARTHRALGIA [None]
  - COAGULOPATHY [None]
  - JOINT EFFUSION [None]
  - JOINT SWELLING [None]
  - OEDEMA PERIPHERAL [None]
  - SKIN DISCOLOURATION [None]
